FAERS Safety Report 12810672 (Version 3)
Quarter: 2016Q4

REPORT INFORMATION
  Report Type: Spontaneous
  Country: GB (occurrence: GB)
  Receive Date: 20161005
  Receipt Date: 20161018
  Transmission Date: 20170207
  Serious: Yes (Hospitalization, Other)
  Sender: FDA-Public Use
  Company Number: GB-TEVA-696543ACC

PATIENT
  Age: 71 Year
  Sex: Male

DRUGS (2)
  1. PICOLAX (FERRING PHARMACEUTICALS) [Concomitant]
     Indication: LAXATIVE SUPPORTIVE CARE
     Dates: start: 2015
  2. WARFARIN [Suspect]
     Active Substance: WARFARIN
     Indication: ATRIAL FIBRILLATION
     Route: 065

REACTIONS (10)
  - Haemorrhage [Unknown]
  - Contusion [Unknown]
  - Pain [Unknown]
  - Aspiration joint [Unknown]
  - Movement disorder [Unknown]
  - Swelling [Unknown]
  - Headache [Unknown]
  - Abdominal discomfort [Unknown]
  - Malaise [Unknown]
  - International normalised ratio increased [Unknown]

NARRATIVE: CASE EVENT DATE: 2006
